FAERS Safety Report 20947870 (Version 1)
Quarter: 2022Q2

REPORT INFORMATION
  Report Type: Spontaneous
  Country: FR (occurrence: FR)
  Receive Date: 20220611
  Receipt Date: 20220611
  Transmission Date: 20220721
  Serious: Yes (Hospitalization)
  Sender: FDA-Public Use
  Company Number: None

PATIENT
  Age: 66 Year
  Sex: Male
  Weight: 71.5 kg

DRUGS (2)
  1. OLANZAPINE [Suspect]
     Active Substance: OLANZAPINE
     Indication: Intentional overdose
     Dosage: 20 MG, QD (NP)
     Route: 048
     Dates: start: 20220512, end: 20220512
  2. LITHIUM [Suspect]
     Active Substance: LITHIUM
     Indication: Intentional overdose
     Dosage: 400 MG, QD (LP 400 MG QUANTIT? NP)
     Route: 048
     Dates: start: 20220512, end: 20220512

REACTIONS (5)
  - Poisoning deliberate [Recovered/Resolved]
  - Extrapyramidal disorder [Recovered/Resolved]
  - Agitation [Recovered/Resolved]
  - Tachycardia [Recovered/Resolved]
  - Disturbance in attention [Recovered/Resolved]

NARRATIVE: CASE EVENT DATE: 20220512
